FAERS Safety Report 8519367 (Version 3)
Quarter: 2012Q4

REPORT INFORMATION
  Report Type: 
  Country: US (occurrence: US)
  Receive Date: 20120418
  Receipt Date: 20120904
  Transmission Date: 20130627
  Serious: Yes (Other)
  Sender: FDA-Public Use
  Company Number: US-BAYER-2012-036832

PATIENT
  Age: 35 Year
  Sex: Female
  Weight: 86.17 kg

DRUGS (6)
  1. YASMIN [Suspect]
     Indication: CONTRACEPTION
     Dosage: UNK
     Dates: start: 200604
  2. YASMIN [Suspect]
     Indication: MIGRAINE
  3. YAZ [Suspect]
     Indication: MIGRAINE
     Dosage: UNK
     Dates: start: 200812, end: 201004
  4. YAZ [Suspect]
     Indication: CONTRACEPTION
  5. EXCEDRIN MIGRAINE [Concomitant]
     Indication: MIGRAINE
     Dosage: 500 mg, PRN
     Dates: start: 2001
  6. PHENTERMINE [Concomitant]
     Indication: WEIGHT CONTROL
     Dosage: 30 mg, UNK

REACTIONS (7)
  - Cholecystitis chronic [None]
  - Cholelithiasis [None]
  - Abdominal pain [None]
  - Nausea [None]
  - Vomiting [None]
  - Injury [None]
  - Pain [None]
